FAERS Safety Report 7575478-5 (Version None)
Quarter: 2011Q2

REPORT INFORMATION
  Report Type: 
  Country: None (occurrence: None)
  Receive Date: 20110627
  Receipt Date: 20110617
  Transmission Date: 20111010
  Serious: Yes (Hospitalization, Other)
  Sender: FDA-Public Use
  Company Number: US-ASTRAZENECA-2011SE32305

PATIENT
  Age: 82 Year
  Sex: Male

DRUGS (2)
  1. CRESTOR [Suspect]
     Route: 048
     Dates: start: 20050101
  2. LEXAPRO [Suspect]
     Route: 065
     Dates: end: 20091010

REACTIONS (24)
  - LOSS OF CONSCIOUSNESS [None]
  - URINARY TRACT INFECTION [None]
  - SPINAL FUSION SURGERY [None]
  - BLADDER NECK SUSPENSION [None]
  - EJECTION FRACTION DECREASED [None]
  - CONFUSIONAL STATE [None]
  - VENTRICULAR TACHYCARDIA [None]
  - CERVICAL VERTEBRAL FRACTURE [None]
  - CEREBROVASCULAR ACCIDENT [None]
  - WEIGHT DECREASED [None]
  - RADIOISOTOPE SCAN [None]
  - SUICIDAL IDEATION [None]
  - DEHYDRATION [None]
  - CORONARY ARTERY DISEASE [None]
  - PNEUMONIA [None]
  - SYNCOPE [None]
  - HYPERSOMNIA [None]
  - ASTHENIA [None]
  - FALL [None]
  - PRESYNCOPE [None]
  - CATARACT OPERATION [None]
  - INCONTINENCE [None]
  - DEMENTIA ALZHEIMER'S TYPE [None]
  - VOMITING [None]
